FAERS Safety Report 9028041 (Version 1)
Quarter: 2013Q1

REPORT INFORMATION
  Report Type: Spontaneous
  Country: US (occurrence: US)
  Receive Date: 20130123
  Receipt Date: 20130123
  Transmission Date: 20140127
  Serious: Yes (Hospitalization)
  Sender: FDA-Public Use
  Company Number: US-JNJFOC-20130109547

PATIENT
  Sex: Female

DRUGS (3)
  1. XARELTO [Suspect]
     Indication: THROMBOSIS PROPHYLAXIS
     Route: 065
  2. PREDNISONE [Concomitant]
     Route: 065
  3. MULTIPLE MEDICATIONS UNSPECIFIED [Concomitant]
     Route: 065

REACTIONS (1)
  - Blood count abnormal [Unknown]
